FAERS Safety Report 21203390 (Version 4)
Quarter: 2022Q4

REPORT INFORMATION
  Report Type: Report from Study
  Country: US (occurrence: US)
  Receive Date: 20220811
  Receipt Date: 20221123
  Transmission Date: 20230113
  Serious: Yes (Hospitalization, Other)
  Sender: FDA-Public Use
  Company Number: US-BRISTOL-MYERS SQUIBB COMPANY-2022-063886

PATIENT
  Age: 56 Year
  Sex: Male

DRUGS (21)
  1. MAVACAMTEN [Suspect]
     Active Substance: MAVACAMTEN
     Indication: Hypertrophic cardiomyopathy
     Dosage: MOST RECENT DOSE RECEIVED ON 08-SEP-2022.?DRUG INTERRUPTED ON 23-JUN-2022 AND IT WAS RE-STARTED ON 1
     Route: 065
     Dates: start: 20200226, end: 20220908
  2. PREDNISOLONE [Concomitant]
     Active Substance: PREDNISOLONE
     Indication: Cataract operation
     Dosage: 0.1 % OPHTHAMIC SOLUTION
     Route: 047
     Dates: start: 20220323
  3. KETOROLAC [Concomitant]
     Active Substance: KETOROLAC TROMETHAMINE
     Indication: Cataract operation
     Dosage: 0.5 % OPHTHAMIC SOLUTION
     Route: 047
     Dates: start: 20220319
  4. KETOROLAC [Concomitant]
     Active Substance: KETOROLAC TROMETHAMINE
     Dosage: THREE TIMES A DAY
     Route: 047
     Dates: start: 20220506
  5. OFLOXACIN [Concomitant]
     Active Substance: OFLOXACIN
     Indication: Cataract operation
     Dosage: 0.3 % OPHTHAMIC SOLUTION
     Route: 047
     Dates: start: 20220319
  6. STRATTERA [Concomitant]
     Active Substance: ATOMOXETINE HYDROCHLORIDE
     Indication: Anxiety
     Route: 048
     Dates: start: 20210826
  7. LISINOPRIL [Concomitant]
     Active Substance: LISINOPRIL
     Indication: Hypertension
     Route: 048
     Dates: start: 20200308
  8. COLLAGEN [Concomitant]
     Active Substance: COLLAGEN
     Indication: Supplementation therapy
     Dosage: PRN
     Route: 048
     Dates: start: 20190913
  9. ALLEVESS [Concomitant]
     Active Substance: CAPSAICIN\MENTHOL
     Indication: Arthralgia
     Dosage: PRN
     Route: 048
     Dates: start: 201809
  10. IBUPROFEN [Concomitant]
     Active Substance: IBUPROFEN
     Indication: Arthralgia
     Dosage: PRN
     Route: 048
     Dates: start: 201809
  11. GLUCAGON [Concomitant]
     Active Substance: GLUCAGON
     Indication: Type 1 diabetes mellitus
     Dosage: PRN
     Route: 058
     Dates: start: 20180413
  12. VERAPAMIL [Concomitant]
     Active Substance: VERAPAMIL HYDROCHLORIDE
     Indication: Hypertrophic cardiomyopathy
     Route: 048
     Dates: start: 2015
  13. BECLOMETHASONE [Concomitant]
     Active Substance: BECLOMETHASONE
     Indication: Asthma
     Route: 048
     Dates: start: 20130330
  14. CRESTOR [Concomitant]
     Active Substance: ROSUVASTATIN CALCIUM
     Indication: Hypercholesterolaemia
     Dosage: EVERY OTHER DAY
     Route: 048
     Dates: start: 2012
  15. SIMPLYONE [Concomitant]
     Indication: Supplementation therapy
     Dosage: 1 CAPSULE
     Route: 048
     Dates: start: 2005
  16. ALBUTEROL [Concomitant]
     Active Substance: ALBUTEROL
     Indication: Asthma
     Dosage: AS NECESSARY
     Route: 055
     Dates: start: 2001
  17. CETIRIZINE HYDROCHLORIDE [Concomitant]
     Active Substance: CETIRIZINE HYDROCHLORIDE
     Indication: Seasonal allergy
     Dosage: AS NECESSARY
     Route: 048
     Dates: start: 2001
  18. INSULIN LISPRO [Concomitant]
     Active Substance: INSULIN LISPRO
     Indication: Type 1 diabetes mellitus
     Dosage: 100 UNITS/ML
     Route: 058
     Dates: start: 1976
  19. LOTEMAX [Concomitant]
     Active Substance: LOTEPREDNOL ETABONATE
     Indication: Cataract
     Dosage: 1 EYE DROP, THREE TIMES DAY
     Route: 047
     Dates: start: 20220411
  20. SIMBRINZA [Concomitant]
     Active Substance: BRIMONIDINE TARTRATE\BRINZOLAMIDE
     Indication: Cataract
     Dosage: 1 EYE DROP
     Route: 047
     Dates: start: 20220411, end: 20220608
  21. LASIX [Concomitant]
     Active Substance: FUROSEMIDE
     Indication: Hypertrophic cardiomyopathy
     Dosage: ONCE
     Route: 042
     Dates: start: 20220622, end: 20220622

REACTIONS (3)
  - Acute myocardial infarction [Recovered/Resolved]
  - Heat exhaustion [Recovered/Resolved]
  - Ejection fraction decreased [Recovered/Resolved]

NARRATIVE: CASE EVENT DATE: 20220621
